FAERS Safety Report 6522726-6 (Version None)
Quarter: 2009Q4

REPORT INFORMATION
  Report Type: 
  Country: None (occurrence: None)
  Receive Date: 20091222
  Receipt Date: 20091208
  Transmission Date: 20100525
  Serious: Yes (Hospitalization)
  Sender: FDA-Public Use
  Company Number: 2009AL007661

PATIENT
  Age: 20 Year
  Sex: Female

DRUGS (3)
  1. CITALOPRAM HYDROBROMIDE [Suspect]
     Dosage: 2760 MG;UNK;PO
     Route: 048
  2. DIAZEPAM [Suspect]
     Dosage: 10 MG;UNK;UNK
  3. ALCOHOL [Concomitant]

REACTIONS (6)
  - ABDOMINAL PAIN [None]
  - GRAND MAL CONVULSION [None]
  - HYPOGLYCAEMIA [None]
  - MULTIPLE DRUG OVERDOSE INTENTIONAL [None]
  - PYREXIA [None]
  - SINUS TACHYCARDIA [None]
